FAERS Safety Report 14955705 (Version 3)
Quarter: 2018Q3

REPORT INFORMATION
  Report Type: Report from Study
  Country: US (occurrence: US)
  Receive Date: 20180531
  Receipt Date: 20180820
  Transmission Date: 20181010
  Serious: No
  Sender: FDA-Public Use
  Company Number: US-ALXN-A201710661AA

PATIENT
  Age: 20 Year
  Sex: Female
  Weight: 59.4 kg

DRUGS (23)
  1. STRENSIQ [Suspect]
     Active Substance: ASFOTASE ALFA
     Indication: HYPOPHOSPHATASIA
     Dosage: 2 MG/KG, TIW
     Route: 058
     Dates: start: 20161026, end: 201701
  2. AZULFIDINE [Concomitant]
     Active Substance: SULFASALAZINE
     Indication: SPONDYLITIS
     Dosage: UNK
     Route: 065
     Dates: start: 20161212
  3. CONCERTA [Concomitant]
     Active Substance: METHYLPHENIDATE HYDROCHLORIDE
     Indication: ATTENTION DEFICIT/HYPERACTIVITY DISORDER
     Dosage: 36 MG, QD
     Route: 048
     Dates: start: 20161212
  4. STRENSIQ [Suspect]
     Active Substance: ASFOTASE ALFA
     Dosage: 0.6 MG, UNK
     Route: 058
     Dates: start: 20161026
  5. STRENSIQ [Suspect]
     Active Substance: ASFOTASE ALFA
     Dosage: 2 MG/KG, TIW
     Route: 058
     Dates: start: 20170214, end: 20170227
  6. BACTROBAN [Concomitant]
     Active Substance: MUPIROCIN\MUPIROCIN CALCIUM
     Indication: CHEST WALL ABSCESS
     Dosage: 1 APPLICATION, PRN
     Route: 061
     Dates: start: 20170515
  7. ALBUTEROL SULFATE. [Concomitant]
     Active Substance: ALBUTEROL SULFATE
     Dosage: 2.5 MG, Q4H TO Q6H PRN
     Route: 050
     Dates: start: 20141003
  8. COLCHICINE. [Concomitant]
     Active Substance: COLCHICINE
     Indication: PROPHYLAXIS
     Dosage: 0.6 MG, QOD
     Route: 048
  9. BENADRYL [Concomitant]
     Active Substance: DIPHENHYDRAMINE HYDROCHLORIDE
     Indication: INSOMNIA
     Dosage: 1 TAB, PRN
     Route: 048
     Dates: start: 2017
  10. DEPO?MEDROL [Concomitant]
     Active Substance: METHYLPREDNISOLONE ACETATE
     Indication: SPONDYLITIS
     Dosage: 80 MG, PRN
     Route: 030
     Dates: start: 2016
  11. CLARITIN [Concomitant]
     Active Substance: LORATADINE
     Indication: HYPERSENSITIVITY
     Dosage: 1 TAB, QD
     Route: 048
     Dates: start: 20160726
  12. IBUPROFEN. [Concomitant]
     Active Substance: IBUPROFEN
     Indication: MYALGIA
     Dosage: 400 MG, PRN
     Route: 048
     Dates: start: 2013
  13. STRENSIQ [Suspect]
     Active Substance: ASFOTASE ALFA
     Dosage: 0.6 MG, UNK
     Route: 058
     Dates: start: 201709
  14. BACTRIM [Concomitant]
     Active Substance: SULFAMETHOXAZOLE\TRIMETHOPRIM
     Indication: CHEST WALL ABSCESS
     Dosage: 1 TAB, BID
     Route: 048
     Dates: start: 20170515
  15. MIRALAX [Concomitant]
     Active Substance: POLYETHYLENE GLYCOL 3350
     Indication: CONSTIPATION
     Dosage: 1 CAPFUL, PRN
     Route: 048
     Dates: start: 2014
  16. ALBUTEROL SULFATE. [Concomitant]
     Active Substance: ALBUTEROL SULFATE
     Indication: ASTHMA
     Dosage: 2 PUFF, PRN
     Route: 050
     Dates: start: 2013
  17. ZIANA [Concomitant]
     Active Substance: CLINDAMYCIN PHOSPHATE\TRETINOIN
     Indication: ACNE
     Dosage: 1 APPLICATION, QD
     Route: 061
     Dates: start: 2013
  18. MOBIC [Concomitant]
     Active Substance: MELOXICAM
     Indication: SPONDYLITIS
     Dosage: 1 TAB, QD
     Route: 048
     Dates: start: 20160708, end: 201705
  19. ADDERALL [Concomitant]
     Active Substance: AMPHETAMINE ASPARTATE\AMPHETAMINE SULFATE\DEXTROAMPHETAMINE SACCHARATE\DEXTROAMPHETAMINE SULFATE
     Indication: PRODUCT USED FOR UNKNOWN INDICATION
     Dosage: 25 MG, QD AM
     Route: 048
     Dates: start: 20170501
  20. RANITIDINE. [Concomitant]
     Active Substance: RANITIDINE
     Indication: PRODUCT USED FOR UNKNOWN INDICATION
     Dosage: UNK
     Route: 065
  21. MOBIC [Concomitant]
     Active Substance: MELOXICAM
     Dosage: 15 MG, QD
     Route: 048
  22. PROAIR HFA [Concomitant]
     Active Substance: ALBUTEROL SULFATE
     Indication: PRODUCT USED FOR UNKNOWN INDICATION
     Dosage: 2 PUFF, Q4H TO Q6H PRN
     Route: 050
     Dates: start: 20170206
  23. COLCHICINE. [Concomitant]
     Active Substance: COLCHICINE
     Dosage: 1 CAPFUL, BID
     Route: 048
     Dates: start: 2016, end: 201705

REACTIONS (1)
  - Nephrolithiasis [Recovered/Resolved]

NARRATIVE: CASE EVENT DATE: 20170905
